FAERS Safety Report 22995434 (Version 2)
Quarter: 2023Q4

REPORT INFORMATION
  Report Type: Spontaneous
  Country: US (occurrence: None)
  Receive Date: 20230927
  Receipt Date: 20231030
  Transmission Date: 20240110
  Serious: No
  Sender: FDA-Public Use
  Company Number: 2023A214852

PATIENT
  Sex: Female

DRUGS (1)
  1. SYMBICORT [Suspect]
     Active Substance: BUDESONIDE\FORMOTEROL FUMARATE DIHYDRATE
     Dosage: SYMBICORT 80/4.5 UNKNOWN
     Route: 055
     Dates: start: 20230401

REACTIONS (9)
  - Dysgeusia [Unknown]
  - Nasopharyngitis [Unknown]
  - Respiratory tract congestion [Unknown]
  - Wheezing [Unknown]
  - Cough [Unknown]
  - Wrong technique in device usage process [Unknown]
  - Off label use [Unknown]
  - Device use issue [Unknown]
  - Device defective [Unknown]
